FAERS Safety Report 9527953 (Version 1)
Quarter: 2013Q1

REPORT INFORMATION
  Report Type: Spontaneous
  Country: US (occurrence: None)
  Receive Date: 20130313
  Receipt Date: 20130313
  Transmission Date: 20140127
  Serious: No
  Sender: FDA-Public Use
  Company Number: 1000027923

PATIENT
  Age: 44 Year
  Sex: Female

DRUGS (3)
  1. SAVELLA [Suspect]
     Indication: FIBROMYALGIA
     Route: 048
     Dates: start: 2011, end: 2011
  2. FLONASE (FLUTICASONE PROPIONATE) [Concomitant]
  3. RANITIDINE (RANITIDINE (RANITIDINE) [Concomitant]

REACTIONS (1)
  - Blood pressure increased [None]
